FAERS Safety Report 10058615 (Version 1)
Quarter: 2014Q2

REPORT INFORMATION
  Report Type: Spontaneous
  Country: FR (occurrence: FR)
  Receive Date: 20140404
  Receipt Date: 20140404
  Transmission Date: 20141212
  Serious: Yes (Hospitalization)
  Sender: FDA-Public Use
  Company Number: FR-JNJFOC-20140318754

PATIENT
  Age: 61 Year
  Sex: Male

DRUGS (9)
  1. XARELTO [Suspect]
     Indication: ATRIAL FIBRILLATION
     Route: 048
     Dates: start: 201311
  2. LERCAN [Concomitant]
     Route: 065
  3. PRAVADUAL [Concomitant]
     Route: 065
  4. SOTALOL [Concomitant]
     Route: 065
     Dates: start: 201312
  5. NOVONORM [Concomitant]
     Route: 065
  6. STAGID [Concomitant]
     Route: 065
  7. KESTIN [Concomitant]
     Route: 065
  8. ALTEIS [Concomitant]
     Route: 065
  9. EUCREAS [Concomitant]
     Route: 065

REACTIONS (1)
  - Anaemia [Recovering/Resolving]
